FAERS Safety Report 9827786 (Version 1)
Quarter: 2014Q1

REPORT INFORMATION
  Report Type: Report from Study
  Country: US (occurrence: US)
  Receive Date: 20140117
  Receipt Date: 20140117
  Transmission Date: 20141002
  Serious: Yes (Other)
  Sender: FDA-Public Use
  Company Number: US-BRISTOL-MYERS SQUIBB COMPANY-19991421

PATIENT
  Age: 55 Year
  Sex: Female
  Weight: 57.59 kg

DRUGS (1)
  1. ABATACEPT [Suspect]
     Indication: RHEUMATOID ARTHRITIS
     Dosage: NO OF INF:4
     Route: 042

REACTIONS (3)
  - Palpitations [Unknown]
  - Dyspnoea [Unknown]
  - Circumstance or information capable of leading to medication error [Unknown]
